FAERS Safety Report 6380372-1 (Version None)
Quarter: 2009Q3

REPORT INFORMATION
  Report Type: 
  Country: None (occurrence: None)
  Receive Date: 20090929
  Receipt Date: 20090917
  Transmission Date: 20100115
  Serious: Yes (Hospitalization)
  Sender: FDA-Public Use
  Company Number: JP-BAYER-200913262BYL

PATIENT
  Age: 80 Year
  Sex: Male
  Weight: 56 kg

DRUGS (16)
  1. NEXAVAR [Suspect]
     Indication: HEPATIC NEOPLASM MALIGNANT
     Dosage: TOTAL DAILY DOSE: 800 MG  UNIT DOSE: 200 MG
     Route: 048
     Dates: start: 20090810, end: 20090828
  2. URSO 250 [Concomitant]
     Dosage: TOTAL DAILY DOSE: 600 MG  UNIT DOSE: 100 MG
     Route: 048
  3. PERSANTINE [Concomitant]
     Dosage: TOTAL DAILY DOSE: 75 MG  UNIT DOSE: 25 MG
     Route: 048
  4. MUCOSTA [Concomitant]
     Dosage: TOTAL DAILY DOSE: 300 MG  UNIT DOSE: 100 MG
     Route: 048
  5. ADONA [Concomitant]
     Dosage: TOTAL DAILY DOSE: 90 MG  UNIT DOSE: 30 MG
     Route: 048
  6. AMLODIN OD [Concomitant]
     Dosage: UNIT DOSE: 5 MG
     Route: 048
  7. ALLOPURINOL [Concomitant]
     Dosage: UNIT DOSE: 100 MG
     Route: 048
  8. HARNAL D [Concomitant]
     Dosage: UNIT DOSE: 0.1 MG
     Route: 048
  9. SUNRYTHM [Concomitant]
     Dosage: TOTAL DAILY DOSE: 100 MG  UNIT DOSE: 50 MG
     Route: 048
  10. MAGMITT [Concomitant]
     Dosage: TOTAL DAILY DOSE: 2970 MG  UNIT DOSE: 330 MG
     Route: 048
     Dates: start: 20090828
  11. ANDERM [Concomitant]
     Route: 061
     Dates: start: 20090903
  12. EBRANTIL [Concomitant]
     Dosage: TOTAL DAILY DOSE: 30 MG  UNIT DOSE: 15 MG
     Route: 048
     Dates: start: 20090904
  13. URIEF [Concomitant]
     Dosage: TOTAL DAILY DOSE: 4 MG  UNIT DOSE: 2 MG
     Route: 048
     Dates: start: 20090904
  14. UBRETID [Concomitant]
     Dosage: TOTAL DAILY DOSE: 10 MG  UNIT DOSE: 5 MG
     Route: 048
     Dates: start: 20090904
  15. GASTER D [Concomitant]
     Dosage: TOTAL DAILY DOSE: 2 DF
     Route: 048
     Dates: start: 20090904
  16. GLYCERIN [Concomitant]
     Dosage: UNIT DOSE: 60 ML
     Route: 054
     Dates: start: 20090907, end: 20090907

REACTIONS (3)
  - ANAL ABSCESS [None]
  - HEPATIC FUNCTION ABNORMAL [None]
  - PALMAR-PLANTAR ERYTHRODYSAESTHESIA SYNDROME [None]
